FAERS Safety Report 9927952 (Version 1)
Quarter: 2014Q1

REPORT INFORMATION
  Report Type: Spontaneous
  Country: US (occurrence: US)
  Receive Date: 20140227
  Receipt Date: 20140227
  Transmission Date: 20141002
  Serious: No
  Sender: FDA-Public Use
  Company Number: US-PFIZER INC-2014052666

PATIENT
  Sex: Female

DRUGS (6)
  1. CELEBREX [Suspect]
     Dosage: UNK
  2. LISINOPRIL [Concomitant]
     Indication: HYPERTENSION
     Dosage: 30 MG, 1X/DAY
  3. SYNTHROID [Concomitant]
     Dosage: 0.112 MG, 1X/DAY
  4. FENTANYL [Concomitant]
     Dosage: UNK, EVERY 36 HOURS
  5. COMBIPATCH [Concomitant]
     Indication: ARTHRITIS
     Dosage: UNK
  6. OXYCODONE [Concomitant]
     Dosage: 5 MG, AS NEEDED

REACTIONS (3)
  - Anxiety [Unknown]
  - Spinal disorder [Unknown]
  - Bone disorder [Unknown]
